FAERS Safety Report 4582603-7 (Version None)
Quarter: 2005Q1

REPORT INFORMATION
  Report Type: 
  Country: None (occurrence: None)
  Receive Date: 20050215
  Receipt Date: 20050117
  Transmission Date: 20050727
  Serious: Yes (Hospitalization, Other)
  Sender: FDA-Public Use
  Company Number: PHFR2005GB00587

PATIENT
  Age: 41 Year
  Sex: Female
  Weight: 77 kg

DRUGS (4)
  1. CARBAMAZEPINE [Suspect]
     Indication: BIPOLAR DISORDER
     Dosage: UNK, UNK
     Route: 048
     Dates: start: 20041001, end: 20041214
  2. CARBAMAZEPINE [Suspect]
     Dosage: 600 MG/DAY
     Route: 048
  3. ERYTHROMYCIN [Suspect]
  4. CLARITHROMYCIN [Suspect]
     Indication: LOWER RESPIRATORY TRACT INFECTION
     Route: 048
     Dates: start: 20041118, end: 20041125

REACTIONS (11)
  - CONVULSION [None]
  - COUGH [None]
  - DYSPNOEA [None]
  - INCONTINENCE [None]
  - LOWER RESPIRATORY TRACT INFECTION [None]
  - PNEUMONIA [None]
  - PYREXIA [None]
  - RESPIRATORY ARREST [None]
  - TREMOR [None]
  - VOMITING [None]
  - WHEEZING [None]
